FAERS Safety Report 23579970 (Version 2)
Quarter: 2024Q2

REPORT INFORMATION
  Report Type: Spontaneous
  Country: US (occurrence: US)
  Receive Date: 20240229
  Receipt Date: 20240508
  Transmission Date: 20240715
  Serious: No
  Sender: FDA-Public Use
  Company Number: US-VIIV HEALTHCARE LIMITED-GB2024022018

PATIENT
  Sex: Male

DRUGS (4)
  1. CABENUVA [Interacting]
     Active Substance: CABOTEGRAVIR\RILPIVIRINE
     Indication: HIV infection
     Dosage: UNK
     Dates: start: 20240208
  2. CABENUVA [Interacting]
     Active Substance: CABOTEGRAVIR\RILPIVIRINE
  3. CABENUVA [Interacting]
     Active Substance: CABOTEGRAVIR\RILPIVIRINE
  4. ESTROGENS [Interacting]
     Active Substance: ESTROGENS
     Indication: Gender reassignment therapy
     Dosage: UNK UNK, WE
     Route: 058

REACTIONS (18)
  - Hyperaesthesia [Recovered/Resolved]
  - Mood altered [Recovered/Resolved]
  - Discomfort [Unknown]
  - Pain [Unknown]
  - Hypoaesthesia [Unknown]
  - Gait disturbance [Unknown]
  - Anxiety [Unknown]
  - Nervous system disorder [Unknown]
  - Decreased appetite [Unknown]
  - Irritability [Unknown]
  - Pain in extremity [Unknown]
  - Temperature intolerance [Unknown]
  - Limb discomfort [Unknown]
  - Swelling [Unknown]
  - Musculoskeletal stiffness [Unknown]
  - Loss of personal independence in daily activities [Unknown]
  - Drug interaction [Unknown]
  - Dysstasia [Unknown]

NARRATIVE: CASE EVENT DATE: 20240208
